FAERS Safety Report 6062395-5 (Version None)
Quarter: 2009Q1

REPORT INFORMATION
  Report Type: 
  Country: None (occurrence: None)
  Receive Date: 20090203
  Receipt Date: 20090129
  Transmission Date: 20090719
  Serious: Yes (Other)
  Sender: FDA-Public Use
  Company Number: SE-JNJFOC-20090105123

PATIENT
  Age: 16 Year
  Sex: Female
  Weight: 62 kg

DRUGS (2)
  1. CONCERTA [Suspect]
     Indication: ATTENTION DEFICIT/HYPERACTIVITY DISORDER
     Dosage: INITIATED 1,5 YEARS AGO
     Route: 048
  2. SERTRALINE [Concomitant]
     Route: 065

REACTIONS (11)
  - CHEST DISCOMFORT [None]
  - CHEST PAIN [None]
  - DRUG DOSE OMISSION [None]
  - FATIGUE [None]
  - HEART RATE INCREASED [None]
  - INSOMNIA [None]
  - MUSCLE SPASMS [None]
  - NAUSEA [None]
  - SYNCOPE [None]
  - TINNITUS [None]
  - VISUAL IMPAIRMENT [None]
